FAERS Safety Report 7623825-8 (Version None)
Quarter: 2011Q3

REPORT INFORMATION
  Report Type: 
  Country: None (occurrence: None)
  Receive Date: 20110720
  Receipt Date: 20110714
  Transmission Date: 20111222
  Serious: Yes (Other)
  Sender: FDA-Public Use
  Company Number: BR-PFIZER INC-2011160393

PATIENT
  Age: 92 Year
  Sex: Female
  Weight: 65 kg

DRUGS (7)
  1. CLOPIDOGREL BISULFATE [Concomitant]
     Dosage: UNK
     Dates: start: 20110201
  2. LIPITOR [Suspect]
     Indication: BLOOD CHOLESTEROL
     Dosage: UNK
     Route: 048
     Dates: start: 20110201
  3. ANCORON [Concomitant]
     Dosage: UNK
  4. ASPIRIN [Concomitant]
     Dosage: UNK
     Dates: start: 20110201
  5. OLMESARTAN MEDOXOMIL [Suspect]
     Indication: HYPERTENSION
     Dosage: 20 MG, 1X/DAY
     Route: 048
     Dates: start: 20110204
  6. INDAPAMIDE [Concomitant]
     Dosage: UNK
     Dates: start: 20110201
  7. NORVASC [Suspect]
     Dosage: UNK
     Route: 048
     Dates: start: 20110201

REACTIONS (4)
  - VERTIGO [None]
  - AGGRESSION [None]
  - MOOD ALTERED [None]
  - APNOEA [None]
